FAERS Safety Report 11264954 (Version 1)
Quarter: 2015Q3

REPORT INFORMATION
  Report Type: Spontaneous
  Country: US (occurrence: None)
  Receive Date: 20150710
  Receipt Date: 20150710
  Transmission Date: 20151125
  Serious: Yes (Disabling)
  Sender: FDA-Public Use
  Company Number: None

PATIENT
  Age: 20 Year
  Sex: Female
  Weight: 54.43 kg

DRUGS (8)
  1. PREDNISONE. [Suspect]
     Active Substance: PREDNISONE
     Indication: MUSCLE SPASMS
     Dosage: 1 PILL FOR 3 DAYS TWICE DAILY TAKEN BY MOUITH
     Route: 048
  2. SINGULAIR [Concomitant]
     Active Substance: MONTELUKAST SODIUM
  3. XOPENEX HFA [Concomitant]
     Active Substance: LEVALBUTEROL TARTRATE
  4. MELATONIN [Concomitant]
     Active Substance: MELATONIN
  5. NATURAL VITAMIN [Concomitant]
  6. SYMBICORT [Concomitant]
     Active Substance: BUDESONIDE\FORMOTEROL FUMARATE DIHYDRATE
  7. NASACORT [Concomitant]
     Active Substance: TRIAMCINOLONE ACETONIDE
  8. JUICE BLEND MULTI-VITAMINS [Concomitant]

REACTIONS (4)
  - Malaise [None]
  - Dyspnoea [None]
  - Mood swings [None]
  - Blood glucose increased [None]

NARRATIVE: CASE EVENT DATE: 20150708
